FAERS Safety Report 5679129-6 (Version None)
Quarter: 2008Q1

REPORT INFORMATION
  Report Type: 
  Country: None (occurrence: None)
  Receive Date: 20080325
  Receipt Date: 20080318
  Transmission Date: 20080703
  Serious: Yes (Other)
  Sender: FDA-Public Use
  Company Number: US-MERCK-0803USA03234

PATIENT
  Sex: Male

DRUGS (3)
  1. VYTORIN [Suspect]
     Route: 048
  2. LIPITOR [Suspect]
     Route: 065
  3. CRESTOR [Suspect]
     Route: 065

REACTIONS (1)
  - DEAFNESS UNILATERAL [None]
